FAERS Safety Report 13203706 (Version 1)
Quarter: 2017Q1

REPORT INFORMATION
  Report Type: Spontaneous
  Country: BE (occurrence: BE)
  Receive Date: 20170209
  Receipt Date: 20170209
  Transmission Date: 20170428
  Serious: Yes (Hospitalization, Other)
  Sender: FDA-Public Use
  Company Number: BE-ASTELLAS-2017US004393

PATIENT
  Age: 34 Year
  Sex: Female

DRUGS (7)
  1. TACROLIMUS. [Suspect]
     Active Substance: TACROLIMUS
     Indication: RENAL TRANSPLANT
     Dosage: UNK UNK, UNKNOWN FREQ.
     Route: 065
  2. MYCOPHENOLATE MOFETIL. [Suspect]
     Active Substance: MYCOPHENOLATE MOFETIL
     Indication: RENAL TRANSPLANT
     Dosage: UNK, UNKNOWN FREQ.
     Route: 065
  3. AMOXICILLIN/CLAVULANIC ACID [Suspect]
     Active Substance: AMOXICILLIN\CLAVULANIC ACID
     Indication: CORYNEBACTERIUM INFECTION
  4. AMOXICILLIN/CLAVULANIC ACID [Suspect]
     Active Substance: AMOXICILLIN\CLAVULANIC ACID
     Indication: STAPHYLOCOCCAL INFECTION
  5. METHYLPREDNISOLONE. [Suspect]
     Active Substance: METHYLPREDNISOLONE
     Route: 065
  6. METHYLPREDNISOLONE. [Suspect]
     Active Substance: METHYLPREDNISOLONE
     Indication: RENAL TRANSPLANT
     Dosage: UNK UNK, UNKNOWN FREQ.
     Route: 065
  7. AMOXICILLIN/CLAVULANIC ACID [Suspect]
     Active Substance: AMOXICILLIN\CLAVULANIC ACID
     Indication: STAPHYLOCOCCAL INFECTION
     Route: 042

REACTIONS (10)
  - Diabetes mellitus [Unknown]
  - Phaehyphomycosis [Recovering/Resolving]
  - Staphylococcal infection [Unknown]
  - Acute disseminated encephalomyelitis [Unknown]
  - Cerebral fungal infection [Recovering/Resolving]
  - Embolism venous [Unknown]
  - Injury [Recovered/Resolved]
  - Transplant rejection [Unknown]
  - Osteomyelitis fungal [Recovering/Resolving]
  - Corynebacterium infection [Unknown]
